FAERS Safety Report 8363100-X (Version None)
Quarter: 2012Q2

REPORT INFORMATION
  Report Type: 
  Country: None (occurrence: None)
  Receive Date: 20120516
  Receipt Date: 20120507
  Transmission Date: 20120825
  Serious: Yes (Disabling)
  Sender: FDA-Public Use
  Company Number: AU-ASTRAZENECA-2011SE72995

PATIENT
  Age: 26380 Day
  Sex: Female

DRUGS (6)
  1. ARIMIDEX [Suspect]
     Route: 048
     Dates: start: 20090201, end: 20111130
  2. CALNATS [Concomitant]
  3. OSTEDIN D [Concomitant]
  4. EFFEXOR [Concomitant]
  5. LIPITOR [Concomitant]
  6. ATACAND [Concomitant]

REACTIONS (3)
  - GINGIVAL RECESSION [None]
  - GINGIVITIS [None]
  - LOOSE TOOTH [None]
